FAERS Safety Report 4713378-6 (Version None)
Quarter: 2005Q3

REPORT INFORMATION
  Report Type: 
  Country: None (occurrence: None)
  Receive Date: 20050713
  Receipt Date: 20050705
  Transmission Date: 20060218
  Serious: Yes (Hospitalization, Other)
  Sender: FDA-Public Use
  Company Number: GB-SANOFI-SYNTHELABO-A01200504628

PATIENT
  Age: 80 Year
  Sex: Female

DRUGS (7)
  1. CLOPIDOGREL BISULFATE [Suspect]
     Indication: MYOCARDIAL ISCHAEMIA
     Route: 048
     Dates: start: 20050525, end: 20050614
  2. ISMN [Concomitant]
     Indication: MYOCARDIAL ISCHAEMIA
     Dosage: 60 MG
     Route: 048
     Dates: start: 20050526
  3. LANSOPRAZOLE [Concomitant]
     Indication: PROPHYLAXIS AGAINST GASTROINTESTINAL ULCER
     Dosage: 30 MG
     Route: 048
     Dates: start: 20050526
  4. ATENOLOL [Concomitant]
     Indication: MYOCARDIAL INFARCTION
     Dosage: 25 MG
     Route: 048
     Dates: start: 20050526
  5. PRAVASTATIN [Concomitant]
     Indication: CARDIAC DISORDER
     Dosage: 20 MG
     Route: 048
     Dates: start: 20050526
  6. PERINDOPRIL [Concomitant]
     Indication: MYOCARDIAL INFARCTION
     Dosage: 4 MG
     Route: 048
     Dates: start: 20050526
  7. ASPIRIN [Concomitant]
     Indication: CARDIAC DISORDER
     Dosage: 75 MG
     Route: 048
     Dates: start: 20050526

REACTIONS (2)
  - HYPOTENSION [None]
  - URTICARIA GENERALISED [None]
